FAERS Safety Report 4865370-9 (Version None)
Quarter: 2005Q4

REPORT INFORMATION
  Report Type: 
  Country: None (occurrence: None)
  Receive Date: 20051223
  Receipt Date: 20051214
  Transmission Date: 20060501
  Serious: Yes (Death, Hospitalization)
  Sender: FDA-Public Use
  Company Number: JP-BRISTOL-MYERS SQUIBB COMPANY-13218326

PATIENT
  Age: 39 Year
  Sex: Male

DRUGS (12)
  1. PARAPLATIN [Suspect]
     Indication: NON-SMALL CELL LUNG CANCER
     Route: 041
     Dates: start: 20030822, end: 20031028
  2. TAXOL [Suspect]
     Indication: NON-SMALL CELL LUNG CANCER
     Route: 041
     Dates: start: 20030822, end: 20031028
  3. SOLITA-T NO. 3 [Concomitant]
     Route: 041
     Dates: start: 20031028, end: 20031028
  4. DECADRON [Concomitant]
     Route: 041
     Dates: start: 20031028, end: 20031028
  5. KYTRIL [Concomitant]
     Route: 041
     Dates: start: 20031028, end: 20031028
  6. ISOTONIC SODIUM CHLORIDE [Concomitant]
     Route: 041
     Dates: start: 20031028, end: 20031028
  7. GASTER [Concomitant]
     Route: 041
     Dates: start: 20031028, end: 20031028
  8. RESTAMIN [Concomitant]
     Route: 048
     Dates: start: 20031028, end: 20031028
  9. FLAVINE ADENINE DINUCLEOTIDE [Concomitant]
     Route: 048
     Dates: start: 20030821
  10. PYRIDOXAL PHOSPHATE [Concomitant]
     Route: 048
     Dates: start: 20030821
  11. VOLTAREN [Concomitant]
     Route: 048
     Dates: start: 20030120
  12. MEXITIL [Concomitant]
     Route: 048
     Dates: start: 20030717

REACTIONS (2)
  - MALIGNANT NEOPLASM PROGRESSION [None]
  - PNEUMONIA [None]
